FAERS Safety Report 4727006-7 (Version None)
Quarter: 2005Q3

REPORT INFORMATION
  Report Type: 
  Country: None (occurrence: None)
  Receive Date: 20050726
  Receipt Date: 20050726
  Transmission Date: 20060218
  Serious: Yes (Hospitalization)
  Sender: FDA-Public Use
  Company Number: None

PATIENT
  Age: 79 Year
  Sex: Male

DRUGS (8)
  1. FOSINOPRIL SODIUM [Suspect]
     Indication: HYPERTENSION
     Dosage: 20MG PO QD
     Route: 048
     Dates: start: 20040824, end: 20050603
  2. AMITRIPTYLINE HCL [Concomitant]
  3. ATENOLOL [Concomitant]
  4. DILTIAZEM [Concomitant]
  5. DIPHENHYDRAMINE HCL [Concomitant]
  6. FOSINOPRIL NA [Concomitant]
  7. FUROSEMIDE [Concomitant]
  8. METHYLPREDNISOLONE NA [Concomitant]

REACTIONS (2)
  - DYSPHAGIA [None]
  - SWELLING FACE [None]
